FAERS Safety Report 24151680 (Version 1)
Quarter: 2024Q3

REPORT INFORMATION
  Report Type: Spontaneous
  Country: US (occurrence: US)
  Receive Date: 20240730
  Receipt Date: 20240730
  Transmission Date: 20241016
  Serious: No
  Sender: PERRIGO
  Company Number: US-PERRIGO-24US004034

PATIENT
  Sex: Female

DRUGS (1)
  1. LORATADINE [Suspect]
     Active Substance: LORATADINE
     Indication: Product used for unknown indication
     Dosage: UNKNOWN, UNKNOWN
     Route: 048
     Dates: start: 20240415

REACTIONS (4)
  - Condition aggravated [Unknown]
  - Headache [Unknown]
  - Rhinorrhoea [Unknown]
  - Exposure to unspecified agent [Unknown]

NARRATIVE: CASE EVENT DATE: 20240401
